FAERS Safety Report 8965556 (Version 1)
Quarter: 2012Q4

REPORT INFORMATION
  Report Type: Spontaneous
  Country: DK (occurrence: None)
  Receive Date: 20121205
  Receipt Date: 20121205
  Transmission Date: 20130627
  Serious: Yes (Hospitalization)
  Sender: FDA-Public Use
  Company Number: 2012MA013737

PATIENT
  Age: 61 Year
  Sex: Male

DRUGS (21)
  1. RAMIPRIL [Suspect]
     Indication: DRUG USE FOR UNKNOWN INDICATION
     Route: 048
  2. ALEGITAZAR [Suspect]
     Indication: CARDIOVASCULAR EVENT PROPHYLAXIS
     Route: 048
     Dates: start: 20101122
  3. BURINEX [Suspect]
     Indication: DRUG USE FOR UNKNOWN INDICATION
     Route: 048
  4. LEVEMIR [Concomitant]
  5. DIAZEPAM [Concomitant]
  6. FUROSEMIDE [Concomitant]
  7. BENDROFLUMETHIAZIDE [Concomitant]
  8. AMILORIDE [Concomitant]
  9. NORTIPTYLINE [Concomitant]
  10. PARACETAMOL [Concomitant]
  11. EPLERENONE [Concomitant]
  12. PREGABALIN [Concomitant]
  13. FERROUS SULFATE [Concomitant]
  14. FUSIDIC ACID [Concomitant]
  15. CYCLIZINE [Concomitant]
  16. ACETYLSALICYLIC ACID [Concomitant]
  17. CLOPIDOGREL [Concomitant]
  18. INSPRA [Concomitant]
  19. ROSUVASTATIN [Concomitant]
  20. LANSOPRAZOLE [Concomitant]
  21. BECLOMETASONE [Concomitant]

REACTIONS (2)
  - Fall [None]
  - Accident [None]
